FAERS Safety Report 12318171 (Version 7)
Quarter: 2018Q1

REPORT INFORMATION
  Report Type: Report from Study
  Country: DE (occurrence: DE)
  Receive Date: 20160429
  Receipt Date: 20180301
  Transmission Date: 20180508
  Serious: Yes (Hospitalization, Other)
  Sender: FDA-Public Use
  Company Number: PHHY2016DE050171

PATIENT
  Age: 73 Year
  Sex: Female
  Weight: 92 kg

DRUGS (15)
  1. EXJADE [Suspect]
     Active Substance: DEFERASIROX
     Dosage: 5.4 MG/DL, 5.4 MG/DL, (1 TABLET 500 MG DAILY)
     Route: 048
     Dates: start: 20160225
  2. BISOPROLOL [Concomitant]
     Active Substance: BISOPROLOL
     Indication: HYPERTENSION
     Dosage: 5 MG, QD
     Route: 065
     Dates: start: 20151226
  3. VFEND [Concomitant]
     Active Substance: VORICONAZOLE
     Indication: DYSPNOEA
     Dosage: 400 MG, QD (2X1)
     Route: 065
     Dates: start: 20151226, end: 20160224
  4. VIDAZA [Concomitant]
     Active Substance: AZACITIDINE
     Indication: MYELODYSPLASTIC SYNDROME
     Dosage: 145MG ONCE DAILY FOR 7 DAYS ALL 4 WEEKS
     Route: 065
     Dates: start: 20151207
  5. ENALAPRIL [Concomitant]
     Active Substance: ENALAPRIL
     Indication: DYSPNOEA
     Dosage: 40 MG, QD
     Route: 065
     Dates: start: 20151027, end: 20160411
  6. METFORMIN [Concomitant]
     Active Substance: METFORMIN HYDROCHLORIDE
     Indication: TYPE 2 DIABETES MELLITUS
     Dosage: 1000 MG, BID
     Route: 065
  7. MCP [Concomitant]
     Active Substance: METOCLOPRAMIDE HYDROCHLORIDE
     Indication: PRODUCT USED FOR UNKNOWN INDICATION
     Dosage: 20 MG, BID FOR 7 DAYS ALL 4 WEEKS
     Route: 065
     Dates: start: 20151207
  8. CANDESARTAN. [Concomitant]
     Active Substance: CANDESARTAN
     Indication: HYPERTENSION
     Dosage: 1 DF (32/25MG), BID
     Route: 065
     Dates: start: 20160412
  9. ENALAPRIL [Concomitant]
     Active Substance: ENALAPRIL
     Indication: HYPERTENSION
     Dosage: 20 MG, BID (1-0-1)
     Route: 065
     Dates: end: 20151026
  10. PANTOPRAZOLE [Concomitant]
     Active Substance: PANTOPRAZOLE
     Dosage: 80 MG, QD
     Route: 065
     Dates: start: 20151216
  11. EXJADE [Suspect]
     Active Substance: DEFERASIROX
     Indication: MYELODYSPLASTIC SYNDROME
     Dosage: 5.4 MG/KG, QD (1 TABLET 500 MG DAILY)
     Route: 048
     Dates: start: 20151102, end: 20151130
  12. L-THYROXIN [Concomitant]
     Active Substance: LEVOTHYROXINE SODIUM
     Indication: THYROID DISORDER
     Dosage: 25 UG, BID
     Route: 065
     Dates: end: 20160110
  13. L-THYROXIN [Concomitant]
     Active Substance: LEVOTHYROXINE SODIUM
     Dosage: 50 UG, BID
     Route: 065
     Dates: start: 20160111
  14. CELLONDAN [Concomitant]
     Indication: PRODUCT USED FOR UNKNOWN INDICATION
     Dosage: 4MG ONCE DAILY FOR 7 DAYS ALL 4 WEEKS
     Route: 065
     Dates: start: 20151207
  15. PANTOPRAZOLE [Concomitant]
     Active Substance: PANTOPRAZOLE
     Indication: HAEMATEMESIS
     Dosage: 40 MG, QD (2X1)
     Route: 065

REACTIONS (10)
  - Urinary tract infection [Recovered/Resolved]
  - Bronchopulmonary aspergillosis [Recovered/Resolved]
  - Pancytopenia [Unknown]
  - Neutropenia [Recovered/Resolved]
  - Dyspnoea [Recovered/Resolved]
  - Diarrhoea [Recovered/Resolved]
  - Haematemesis [Recovered/Resolved]
  - Cough [Recovered/Resolved]
  - Hypertensive crisis [Recovered/Resolved]
  - Angiodysplasia [Unknown]

NARRATIVE: CASE EVENT DATE: 20151210
